FAERS Safety Report 4652003-X (Version None)
Quarter: 2005Q2

REPORT INFORMATION
  Report Type: 
  Country: None (occurrence: None)
  Receive Date: 20050502
  Receipt Date: 20050419
  Transmission Date: 20051028
  Serious: Yes (Hospitalization, Other)
  Sender: FDA-Public Use
  Company Number: HQWYE376827AUG03

PATIENT
  Age: 38 Year
  Sex: Female
  Weight: 69 kg

DRUGS (19)
  1. RAPAMUNE [Suspect]
     Indication: PROPHYLAXIS AGAINST TRANSPLANT REJECTION
     Dosage: SEE IMAGE
     Dates: start: 20030611, end: 20030624
  2. RAPAMUNE [Suspect]
     Indication: PROPHYLAXIS AGAINST TRANSPLANT REJECTION
     Dosage: SEE IMAGE
     Dates: start: 20030625, end: 20030703
  3. RAPAMUNE [Suspect]
     Indication: PROPHYLAXIS AGAINST TRANSPLANT REJECTION
     Dosage: SEE IMAGE
     Dates: start: 20030704, end: 20030729
  4. RAPAMUNE [Suspect]
     Indication: PROPHYLAXIS AGAINST TRANSPLANT REJECTION
     Dosage: SEE IMAGE
     Dates: start: 20030730, end: 20030903
  5. RAPAMUNE [Suspect]
     Indication: PROPHYLAXIS AGAINST TRANSPLANT REJECTION
     Dosage: SEE IMAGE
     Dates: start: 20030904, end: 20031231
  6. RAPAMUNE [Suspect]
     Indication: PROPHYLAXIS AGAINST TRANSPLANT REJECTION
     Dosage: SEE IMAGE
     Dates: start: 20040102, end: 20040104
  7. RAPAMUNE [Suspect]
     Indication: PROPHYLAXIS AGAINST TRANSPLANT REJECTION
     Dosage: SEE IMAGE
     Dates: start: 20040105, end: 20040305
  8. NEORAL [Concomitant]
  9. PREDNISONE [Concomitant]
  10. LABETALOL HCL [Concomitant]
  11. ADALAT [Concomitant]
  12. HYDROCHLOROTHIAZIDE [Concomitant]
  13. CLONIDINE [Concomitant]
  14. MINOXIDIL [Concomitant]
  15. BACTRIM [Concomitant]
  16. LISINOPRIL [Concomitant]
  17. ZOCOR [Concomitant]
  18. TOPROL-XL [Concomitant]
  19. EPOGEN [Concomitant]

REACTIONS (20)
  - ABDOMINAL PAIN [None]
  - BACTERIA URINE [None]
  - BLOOD CREATININE INCREASED [None]
  - BLOOD PRESSURE SYSTOLIC INCREASED [None]
  - ENDOMETRIAL HYPERPLASIA [None]
  - FLUID RETENTION [None]
  - HAEMATOCRIT DECREASED [None]
  - HAEMOGLOBIN DECREASED [None]
  - HAEMORRHAGE [None]
  - MENOMETRORRHAGIA [None]
  - OLIGOMENORRHOEA [None]
  - ORTHOSTATIC HYPOTENSION [None]
  - OVARIAN CYST [None]
  - PELVIC PAIN [None]
  - PROTHROMBIN TIME SHORTENED [None]
  - RED BLOOD CELL COUNT DECREASED [None]
  - TENDERNESS [None]
  - THROMBOSIS [None]
  - UTERINE HAEMORRHAGE [None]
  - WOUND DEHISCENCE [None]
